FAERS Safety Report 22032869 (Version 1)
Quarter: 2023Q1

REPORT INFORMATION
  Report Type: Spontaneous
  Country: US (occurrence: None)
  Receive Date: 20230221
  Receipt Date: 20230221
  Transmission Date: 20230417
  Serious: Yes (Death)
  Sender: FDA-Public Use
  Company Number: None

PATIENT
  Age: 56 Year
  Sex: Female
  Weight: 65.77 kg

DRUGS (7)
  1. IBRANCE [Suspect]
     Active Substance: PALBOCICLIB
     Indication: Breast cancer female
     Dosage: FREQUENCY : DAILY;?
     Route: 048
     Dates: start: 202011
  2. ALPRAZOLAM [Concomitant]
  3. ESOMEPRAZOLE [Concomitant]
  4. LETROZOLE [Concomitant]
  5. ONDANSETRON [Concomitant]
  6. OXYCODONE [Concomitant]
     Active Substance: OXYCODONE
  7. PRISTIQ [Concomitant]

REACTIONS (1)
  - Death [None]

NARRATIVE: CASE EVENT DATE: 20230205
